FAERS Safety Report 25393161 (Version 1)
Quarter: 2025Q2

REPORT INFORMATION
  Report Type: Report from Study
  Country: RU (occurrence: RU)
  Receive Date: 20250604
  Receipt Date: 20250604
  Transmission Date: 20250717
  Serious: Yes (Hospitalization, Other)
  Sender: ALEXION PHARMACEUTICALS
  Company Number: RU-AstraZeneca-CH-00881387A

PATIENT
  Age: 67 Year

DRUGS (2)
  1. BUDESONIDE\FORMOTEROL\GLYCOPYRRONIUM [Suspect]
     Active Substance: BUDESONIDE\FORMOTEROL\GLYCOPYRRONIUM
     Indication: Chronic obstructive pulmonary disease
  2. SYMBICORT [Suspect]
     Active Substance: BUDESONIDE\FORMOTEROL FUMARATE DIHYDRATE
     Indication: Chronic obstructive pulmonary disease

REACTIONS (8)
  - Chronic obstructive pulmonary disease [Recovered/Resolved]
  - Dyspnoea [Recovered/Resolved]
  - Asthenia [Recovered/Resolved]
  - Sputum retention [Recovered/Resolved]
  - Upper limb fracture [Unknown]
  - Drug ineffective [Unknown]
  - Cardiac dysfunction [Unknown]
  - Extrasystoles [Unknown]
